FAERS Safety Report 15322135 (Version 1)
Quarter: 2018Q3

REPORT INFORMATION
  Report Type: Spontaneous
  Country: TW (occurrence: TW)
  Receive Date: 20180827
  Receipt Date: 20180827
  Transmission Date: 20181010
  Serious: Yes (Hospitalization)
  Sender: FDA-Public Use
  Company Number: TW-ABBVIE-18K-153-2464277-00

PATIENT
  Age: 75 Year
  Sex: Male

DRUGS (1)
  1. ADALIMUMAB [Suspect]
     Active Substance: ADALIMUMAB
     Indication: RHEUMATOID ARTHRITIS
     Route: 058
     Dates: start: 20110808, end: 20180711

REACTIONS (6)
  - Leukocytosis [Recovering/Resolving]
  - Hiccups [Recovering/Resolving]
  - Liver abscess [Unknown]
  - Pyrexia [Recovering/Resolving]
  - C-reactive protein increased [Recovering/Resolving]
  - Hepatic amoebiasis [Recovering/Resolving]

NARRATIVE: CASE EVENT DATE: 20180801
